FAERS Safety Report 11762457 (Version 1)
Quarter: 2015Q4

REPORT INFORMATION
  Report Type: Spontaneous
  Country: US (occurrence: US)
  Receive Date: 20151120
  Receipt Date: 20151120
  Transmission Date: 20160304
  Serious: No
  Sender: FDA-Public Use
  Company Number: US-ELI_LILLY_AND_COMPANY-US201210008492

PATIENT
  Age: 83 Year
  Sex: Female
  Weight: 62.13 kg

DRUGS (2)
  1. FORTEO [Suspect]
     Active Substance: TERIPARATIDE
     Dosage: 20 UG, QD
     Route: 065
  2. FORTEO [Suspect]
     Active Substance: TERIPARATIDE
     Indication: OSTEOPOROSIS
     Dosage: 20 UG, QD
     Route: 065
     Dates: start: 20120703

REACTIONS (18)
  - Asthenia [Unknown]
  - Visual impairment [Unknown]
  - Fatigue [Unknown]
  - Fall [Unknown]
  - Paraesthesia [Not Recovered/Not Resolved]
  - Dysarthria [Unknown]
  - Nausea [Unknown]
  - Limb discomfort [Not Recovered/Not Resolved]
  - Blood pressure increased [Unknown]
  - Gait disturbance [Recovered/Resolved]
  - Lethargy [Unknown]
  - Dizziness [Recovered/Resolved]
  - Dizziness [Unknown]
  - Balance disorder [Unknown]
  - Lacrimal disorder [Unknown]
  - Muscular weakness [Not Recovered/Not Resolved]
  - Discomfort [Unknown]
  - Headache [Unknown]

NARRATIVE: CASE EVENT DATE: 2012
